FAERS Safety Report 20853761 (Version 1)
Quarter: 2022Q2

REPORT INFORMATION
  Report Type: Spontaneous
  Country: RO (occurrence: None)
  Receive Date: 20220520
  Receipt Date: 20220520
  Transmission Date: 20220721
  Serious: Yes (Other)
  Sender: FDA-Public Use
  Company Number: 2022A185118

PATIENT
  Sex: Male
  Weight: 80 kg

DRUGS (1)
  1. FASENRA [Suspect]
     Active Substance: BENRALIZUMAB
     Indication: Asthma
     Route: 058
     Dates: start: 20210924, end: 20220511

REACTIONS (2)
  - Pulmonary fibrosis [Unknown]
  - Drug ineffective [Unknown]
